FAERS Safety Report 8334160-7 (Version None)
Quarter: 2012Q2

REPORT INFORMATION
  Report Type: 
  Country: None (occurrence: None)
  Receive Date: 20120503
  Receipt Date: 20120424
  Transmission Date: 20120825
  Serious: Yes (Hospitalization, Other)
  Sender: FDA-Public Use
  Company Number: US-ASTRAZENECA-2010SE59647

PATIENT
  Age: 60 Year
  Sex: Female

DRUGS (6)
  1. ULTRAM [Concomitant]
     Indication: PAIN
     Dosage: 50-100 MG EVERY FOR HOURS AS NEEDED
  2. ATACAND [Suspect]
     Route: 048
     Dates: start: 20020101, end: 20100101
  3. TENORMIN [Suspect]
     Route: 048
  4. ASPIRIN [Concomitant]
  5. ZESTRIL [Suspect]
     Route: 048
  6. NORVASC [Concomitant]
     Route: 065

REACTIONS (7)
  - LUNG NEOPLASM [None]
  - DRUG INEFFECTIVE [None]
  - INTENTIONAL DRUG MISUSE [None]
  - COUGH [None]
  - CHEST PAIN [None]
  - ADVERSE EVENT [None]
  - OSTEOARTHRITIS [None]
